FAERS Safety Report 10420067 (Version 1)
Quarter: 2014Q3

REPORT INFORMATION
  Report Type: Spontaneous
  Country: AU (occurrence: AU)
  Receive Date: 20140829
  Receipt Date: 20140829
  Transmission Date: 20150326
  Serious: Yes (Life-Threatening)
  Sender: FDA-Public Use
  Company Number: AU-009507513-1408AUS014759

PATIENT
  Age: 1 Day
  Sex: Male

DRUGS (4)
  1. PERIACTIN [Concomitant]
     Active Substance: CYPROHEPTADINE HYDROCHLORIDE
     Dosage: 8 MILLIGRAM, DAILY
  2. MIRTAZAPINE GA [Suspect]
     Active Substance: MIRTAZAPINE
     Dosage: UNK UNK, DAILY
     Route: 064
  3. QUETIAPINE FUMARATE. [Suspect]
     Active Substance: QUETIAPINE FUMARATE
     Dosage: 200 MILLIGRAM, DAILY
  4. XANAX [Suspect]
     Active Substance: ALPRAZOLAM
     Dosage: 2.5 MILLIGRAM, DAILY

REACTIONS (2)
  - Pyrexia [Recovered/Resolved]
  - Neonatal respiratory distress syndrome [Recovered/Resolved]

NARRATIVE: CASE EVENT DATE: 20130130
